FAERS Safety Report 11990314 (Version 2)
Quarter: 2016Q1

REPORT INFORMATION
  Report Type: Report from Study
  Country: JP (occurrence: JP)
  Receive Date: 20160202
  Receipt Date: 20160216
  Transmission Date: 20160526
  Serious: Yes (Other)
  Sender: FDA-Public Use
  Company Number: JP-PFIZER INC-2016034483

PATIENT
  Age: 71 Year
  Sex: Female
  Weight: 77.5 kg

DRUGS (10)
  1. RHYTHMY [Suspect]
     Active Substance: RILMAZAFONE HYDROCHLORIDE
     Dosage: 2 MG, 1X/DAY
     Route: 048
     Dates: end: 20150130
  2. XALKORI [Suspect]
     Active Substance: CRIZOTINIB
     Dosage: 200 MG, 2X/DAY
     Route: 048
     Dates: start: 20150216
  3. XALKORI [Suspect]
     Active Substance: CRIZOTINIB
     Indication: NON-SMALL CELL LUNG CANCER
     Dosage: 250 MG, 2X/DAY
     Route: 048
     Dates: start: 20140520, end: 20140604
  4. XALKORI [Suspect]
     Active Substance: CRIZOTINIB
     Dosage: 200 MG, 2X/DAY
     Route: 048
     Dates: start: 20140828, end: 20150130
  5. SOLANAX [Concomitant]
     Active Substance: ALPRAZOLAM
     Dosage: 0.4 MG, 3X/DAY
     Route: 048
     Dates: end: 20150130
  6. XALKORI [Suspect]
     Active Substance: CRIZOTINIB
     Dosage: 200 MG, 2X/DAY
     Route: 048
     Dates: start: 20140611, end: 20140820
  7. HALCION [Concomitant]
     Active Substance: TRIAZOLAM
     Dosage: 0.25 MG, 1X/DAY
     Route: 048
     Dates: end: 20150130
  8. LUDIOMIL [Suspect]
     Active Substance: MAPROTILINE HYDROCHLORIDE
     Dosage: 10 MG, 3X/DAY
     Route: 048
     Dates: end: 20150130
  9. DOGMATYL [Suspect]
     Active Substance: SULPIRIDE
     Dosage: 50 MG, 1X/DAY
     Route: 048
     Dates: end: 20150130
  10. REFLEX [Suspect]
     Active Substance: MIRTAZAPINE
     Dosage: 15 MG, 1X/DAY
     Route: 048
     Dates: end: 20150130

REACTIONS (2)
  - Aspartate aminotransferase increased [Recovered/Resolved]
  - Alanine aminotransferase increased [Recovered/Resolved]

NARRATIVE: CASE EVENT DATE: 20150129
